FAERS Safety Report 25933914 (Version 1)
Quarter: 2025Q4

REPORT INFORMATION
  Report Type: Spontaneous
  Country: US (occurrence: None)
  Receive Date: 20251016
  Receipt Date: 20251016
  Transmission Date: 20260118
  Serious: Yes (Hospitalization)
  Sender: FDA-CTU
  Company Number: None

PATIENT
  Age: 68 Year
  Sex: Female

DRUGS (11)
  1. KISQALI [Suspect]
     Active Substance: RIBOCICLIB SUCCINATE
     Indication: Breast cancer
     Dosage: FREQUENCY : DAILY;?
     Route: 048
     Dates: start: 20250110
  2. IRON 325MG TABLETS [Concomitant]
  3. TRELEGY ELLI PTA 200-62.SMCG INH 30P [Concomitant]
  4. BENZONATATE [Concomitant]
     Active Substance: BENZONATATE
  5. METOPROLOL ER SUCCINATE 50MG TABS [Concomitant]
  6. OMEPRAZOLE [Concomitant]
     Active Substance: OMEPRAZOLE
  7. ALBUTEROL HFA INH (200 PUFFS) 6.7GM [Concomitant]
  8. ASPIRIN 81MG EC LOW DOSE TABLETS [Concomitant]
  9. PRAVASTATIN 40MG TABLETS [Concomitant]
  10. LOSARTAN [Concomitant]
     Active Substance: LOSARTAN
  11. LETROZOLE [Concomitant]
     Active Substance: LETROZOLE

REACTIONS (2)
  - Delirium [None]
  - Pneumonia [None]
